FAERS Safety Report 19281472 (Version 1)
Quarter: 2021Q2

REPORT INFORMATION
  Report Type: Spontaneous
  Country: US (occurrence: US)
  Receive Date: 20210520
  Receipt Date: 20210520
  Transmission Date: 20210717
  Serious: No
  Sender: FDA-Public Use
  Company Number: US-MYLANLABS-2021M1027969

PATIENT
  Sex: Female

DRUGS (1)
  1. EMSAM [Suspect]
     Active Substance: SELEGILINE
     Indication: MIGRAINE PROPHYLAXIS
     Dosage: 6 MILLIGRAM, QD

REACTIONS (1)
  - Therapeutic product effective for unapproved indication [Unknown]
